FAERS Safety Report 11849364 (Version 1)
Quarter: 2015Q4

REPORT INFORMATION
  Report Type: Spontaneous
  Country: JP (occurrence: JP)
  Receive Date: 20151218
  Receipt Date: 20151218
  Transmission Date: 20160305
  Serious: Yes (Other)
  Sender: FDA-Public Use
  Company Number: JP-009507513-2006-07-1248

PATIENT
  Sex: Female

DRUGS (6)
  1. REBETOL [Suspect]
     Active Substance: RIBAVIRIN
     Indication: CHRONIC HEPATITIS C
     Dosage: DOSE: 600 MG, DURATION: 11 MONTH(S)
     Route: 048
     Dates: start: 20050304, end: 20060203
  2. LEXOTAN [Concomitant]
     Active Substance: BROMAZEPAM
     Dosage: DOSE: 4 MG DURATION: CONTINUING
     Route: 048
     Dates: start: 200606
  3. PZC SUGAR COATED [Concomitant]
     Dosage: DOSE: 2 MG DURATION: CONTINUING
     Route: 048
     Dates: start: 200606
  4. LIORAM [Concomitant]
     Dosage: DOSE: 10 MG DURATION: CONTINUING
     Route: 048
     Dates: start: 200606
  5. PEGINTRON [Suspect]
     Active Substance: PEGINTERFERON ALFA-2B
     Indication: CHRONIC HEPATITIS C
     Dosage: DOSE: 80 MCG QW, DURATION: 11 MONTH(S)
     Route: 058
     Dates: start: 20050304, end: 20060203
  6. FLUVOXAMINE MALEATE. [Concomitant]
     Active Substance: FLUVOXAMINE MALEATE
     Dosage: DOSE: 25 MG DURATION: CONTINUING
     Route: 048
     Dates: start: 200606

REACTIONS (2)
  - Abortion induced [Unknown]
  - Exposure during pregnancy [Unknown]
